FAERS Safety Report 19487609 (Version 2)
Quarter: 2021Q3

REPORT INFORMATION
  Report Type: Spontaneous
  Country: AU (occurrence: AU)
  Receive Date: 20210702
  Receipt Date: 20210719
  Transmission Date: 20211014
  Serious: Yes (Other)
  Sender: FDA-Public Use
  Company Number: NVSC2021AU141869

PATIENT
  Sex: Male

DRUGS (3)
  1. PREDNISONE. [Suspect]
     Active Substance: PREDNISONE
     Indication: CHRONIC GRAFT VERSUS HOST DISEASE
     Dosage: UNK
     Route: 065
  2. CYCLOSPORINE. [Suspect]
     Active Substance: CYCLOSPORINE
     Indication: CHRONIC GRAFT VERSUS HOST DISEASE
     Dosage: UNK
     Route: 065
  3. MYCOPHENOLATE MOFETIL. [Suspect]
     Active Substance: MYCOPHENOLATE MOFETIL
     Indication: CHRONIC GRAFT VERSUS HOST DISEASE
     Dosage: UNK
     Route: 065

REACTIONS (6)
  - Product use in unapproved indication [Unknown]
  - Therapy partial responder [Unknown]
  - Chronic graft versus host disease [Unknown]
  - Hydronephrosis [Unknown]
  - Drug ineffective [Unknown]
  - Renal impairment [Unknown]
